FAERS Safety Report 25776364 (Version 1)
Quarter: 2025Q3

REPORT INFORMATION
  Report Type: Spontaneous
  Country: US (occurrence: US)
  Receive Date: 20250909
  Receipt Date: 20250909
  Transmission Date: 20251021
  Serious: No
  Sender: DOMPE FARMACEUTICI
  Company Number: US-FARMAPROD-202502-0611

PATIENT
  Sex: Female
  Weight: 67.13 kg

DRUGS (22)
  1. OXERVATE [Suspect]
     Active Substance: CENEGERMIN-BKBJ
     Indication: Neurotrophic keratopathy
     Route: 047
     Dates: start: 20250206
  2. SYSTANE (HYPROMELLOSE 2910 (4000 MPA.S)) [Concomitant]
     Active Substance: HYPROMELLOSE 2910 (4000 MPA.S)
  3. MIEBO [Concomitant]
     Active Substance: PERFLUOROHEXYLOCTANE
  4. VEVYE [Concomitant]
     Active Substance: CYCLOSPORINE
  5. TYRVAYA [Concomitant]
     Active Substance: VARENICLINE TARTRATE
  6. FIORICET [Concomitant]
     Active Substance: ACETAMINOPHEN\BUTALBITAL\CAFFEINE
  7. ELIQUIS [Concomitant]
     Active Substance: APIXABAN
  8. ASPIRIN [Concomitant]
     Active Substance: ASPIRIN
  9. ZOLOFT [Concomitant]
     Active Substance: SERTRALINE HYDROCHLORIDE
  10. VITAMINS [Concomitant]
     Active Substance: VITAMINS
  11. LIDODERM [Concomitant]
     Active Substance: LIDOCAINE
  12. CYMBALTA [Concomitant]
     Active Substance: DULOXETINE HYDROCHLORIDE
  13. FISH OIL [Concomitant]
     Active Substance: FISH OIL
  14. SENNA [Concomitant]
     Active Substance: SENNOSIDES
  15. IBUPROFEN [Concomitant]
     Active Substance: IBUPROFEN
  16. NAPROXEN [Concomitant]
     Active Substance: NAPROXEN
  17. DOCUSATE SODIUM [Concomitant]
     Active Substance: DOCUSATE SODIUM
  18. CYCLOBENZAPRINE HYDROCHLORIDE [Concomitant]
     Active Substance: CYCLOBENZAPRINE HYDROCHLORIDE
  19. ALBUTEROL SULFATE [Concomitant]
     Active Substance: ALBUTEROL SULFATE
  20. OXYCODONE HYDROCHLORIDE [Concomitant]
     Active Substance: OXYCODONE HYDROCHLORIDE
  21. BUTALBITAL-ACETAMINOPHEN-CAFFE [Concomitant]
  22. ALPRAZOLAM [Concomitant]
     Active Substance: ALPRAZOLAM

REACTIONS (6)
  - Wrong technique in product usage process [Unknown]
  - Treatment noncompliance [Unknown]
  - Ocular discomfort [Unknown]
  - Facial pain [Unknown]
  - Paraesthesia [Unknown]
  - Eye pain [Unknown]
